FAERS Safety Report 9448968 (Version 1)
Quarter: 2013Q3

REPORT INFORMATION
  Report Type: Spontaneous
  Country: GB (occurrence: GB)
  Receive Date: 20130808
  Receipt Date: 20130808
  Transmission Date: 20140515
  Serious: Yes (Disabling, Other)
  Sender: FDA-Public Use
  Company Number: PHFR2013GB004548

PATIENT
  Age: 85 Year
  Sex: Male
  Weight: 82.55 kg

DRUGS (2)
  1. TERBINAFINE [Suspect]
     Indication: FUNGAL INFECTION
     Dosage: 250 MG
     Route: 048
     Dates: start: 20130722, end: 20130724
  2. SEREVENT [Concomitant]
     Indication: EMPHYSEMA

REACTIONS (6)
  - Hypersomnia [Recovered/Resolved with Sequelae]
  - Faecal incontinence [Recovered/Resolved with Sequelae]
  - Diarrhoea [Recovered/Resolved with Sequelae]
  - Fatigue [Recovered/Resolved with Sequelae]
  - Decreased appetite [Not Recovered/Not Resolved]
  - Abdominal discomfort [Not Recovered/Not Resolved]
